FAERS Safety Report 5968188-9 (Version None)
Quarter: 2008Q4

REPORT INFORMATION
  Report Type: 
  Country: None (occurrence: None)
  Receive Date: 20081110
  Receipt Date: 20080207
  Transmission Date: 20090506
  Serious: No
  Sender: FDA-Public Use
  Company Number: M2008-001

PATIENT

DRUGS (1)
  1. HISTAMINE HISTAMINE 6 MG/ML HOLLIST-STIER [Suspect]
     Indication: SKIN TEST POSITIVE
     Dosage: ONE DROP ONE TIME SCRATCH
     Dates: start: 20070101, end: 20080101

REACTIONS (1)
  - DRUG INEFFECTIVE [None]
